FAERS Safety Report 12662936 (Version 1)
Quarter: 2016Q3

REPORT INFORMATION
  Report Type: Spontaneous
  Country: US (occurrence: US)
  Receive Date: 20160818
  Receipt Date: 20160818
  Transmission Date: 20161109
  Serious: No
  Sender: FDA-Public Use
  Company Number: US-STRIDES ARCOLAB LIMITED-2016SP010228

PATIENT

DRUGS (10)
  1. KALETRA [Interacting]
     Active Substance: LOPINAVIR\RITONAVIR
     Indication: HIV INFECTION
     Dosage: 3 TABLETS, BID STARTED IN THE EVENING
  2. KALETRA [Interacting]
     Active Substance: LOPINAVIR\RITONAVIR
     Dosage: UNK
  3. TACROLIMUS. [Suspect]
     Active Substance: TACROLIMUS
     Indication: IMMUNOSUPPRESSION
     Dosage: 4 MG, BID
     Route: 048
  4. TACROLIMUS. [Interacting]
     Active Substance: TACROLIMUS
     Dosage: 46 MG, UNK
  5. TACROLIMUS. [Interacting]
     Active Substance: TACROLIMUS
     Dosage: 0.5 MG, ONCE A WEEK
  6. ZIDOVUDINE. [Concomitant]
     Active Substance: ZIDOVUDINE
     Indication: HIV INFECTION
     Dosage: UNK
  7. METHYLPREDNISOLONE. [Concomitant]
     Active Substance: METHYLPREDNISOLONE
     Indication: IMMUNOSUPPRESSION
     Dosage: 1 G, UNK
  8. TACROLIMUS. [Interacting]
     Active Substance: TACROLIMUS
     Dosage: 1 MG
  9. LAMIVUDINE. [Concomitant]
     Active Substance: LAMIVUDINE
     Indication: HIV INFECTION
     Dosage: UNK
  10. TACROLIMUS. [Interacting]
     Active Substance: TACROLIMUS
     Dosage: 2 MG

REACTIONS (1)
  - Drug interaction [Recovered/Resolved]
